FAERS Safety Report 13688215 (Version 2)
Quarter: 2017Q3

REPORT INFORMATION
  Report Type: Spontaneous
  Country: US (occurrence: US)
  Receive Date: 20170626
  Receipt Date: 20170810
  Transmission Date: 20171127
  Serious: Yes (Hospitalization, Other)
  Sender: FDA-Public Use
  Company Number: US-009507513-1706USA008318

PATIENT
  Age: 24 Year
  Sex: Female

DRUGS (6)
  1. ISENTRESS [Suspect]
     Active Substance: RALTEGRAVIR POTASSIUM
     Indication: ACQUIRED IMMUNODEFICIENCY SYNDROME
  2. LOPINAVIR (+) RITONAVIR [Suspect]
     Active Substance: LOPINAVIR\RITONAVIR
     Indication: HIV INFECTION
     Dosage: 400/100 MG BID
  3. LOPINAVIR (+) RITONAVIR [Suspect]
     Active Substance: LOPINAVIR\RITONAVIR
     Indication: ACQUIRED IMMUNODEFICIENCY SYNDROME
  4. ISENTRESS [Suspect]
     Active Substance: RALTEGRAVIR POTASSIUM
     Indication: HIV INFECTION
     Dosage: 400 MG BID
     Route: 048
  5. LAMIVUDINE AND ZIDOVUDINE [Suspect]
     Active Substance: LAMIVUDINE\ZIDOVUDINE
     Indication: HIV INFECTION
     Dosage: 150/350 MG, BID
  6. LAMIVUDINE AND ZIDOVUDINE [Suspect]
     Active Substance: LAMIVUDINE\ZIDOVUDINE
     Indication: ACQUIRED IMMUNODEFICIENCY SYNDROME

REACTIONS (1)
  - Optic neuritis [Recovering/Resolving]
